FAERS Safety Report 16253746 (Version 1)
Quarter: 2019Q2

REPORT INFORMATION
  Report Type: Spontaneous
  Country: US (occurrence: US)
  Receive Date: 20190430
  Receipt Date: 20190430
  Transmission Date: 20190711
  Serious: No
  Sender: FDA-Public Use
  Company Number: US-ELI_LILLY_AND_COMPANY-US201904007903

PATIENT
  Sex: Male

DRUGS (5)
  1. HUMALOG KWIKPEN [Suspect]
     Active Substance: INSULIN LISPRO
     Dosage: 5 INTERNATIONAL UNIT, DAILY
     Route: 058
  2. OZEMPIC [Concomitant]
     Active Substance: SEMAGLUTIDE
     Indication: PRODUCT USED FOR UNKNOWN INDICATION
     Dosage: UNK, WEEKLY (1/W)
  3. HUMALOG KWIKPEN [Suspect]
     Active Substance: INSULIN LISPRO
     Indication: PRODUCT USED FOR UNKNOWN INDICATION
     Dosage: 3 INTERNATIONAL UNIT, DAILY PER MEAL
     Route: 058
  4. HUMALOG KWIKPEN [Suspect]
     Active Substance: INSULIN LISPRO
     Dosage: 7 INTERNATIONAL UNIT, DAILY
     Route: 058
  5. HUMALOG KWIKPEN [Suspect]
     Active Substance: INSULIN LISPRO
     Dosage: 10 INTERNATIONAL UNIT, DAILY
     Route: 058

REACTIONS (6)
  - Blood glucose increased [Recovering/Resolving]
  - Incorrect dose administered [Not Recovered/Not Resolved]
  - Blood glucose decreased [Unknown]
  - Tremor [Unknown]
  - Visual impairment [Unknown]
  - Hypersensitivity [Unknown]
